FAERS Safety Report 19440773 (Version 1)
Quarter: 2021Q2

REPORT INFORMATION
  Report Type: Spontaneous
  Country: CA (occurrence: CA)
  Receive Date: 20210621
  Receipt Date: 20210621
  Transmission Date: 20210717
  Serious: Yes (Hospitalization, Other)
  Sender: FDA-Public Use
  Company Number: CA-CELLTRION INC.-2021CA008375

PATIENT

DRUGS (3)
  1. INFLECTRA [Suspect]
     Active Substance: INFLIXIMAB-DYYB
     Dosage: 300 MG, INDUCTION 0, 2, 6 WEEKS FOLLOWED BY EVERY 8 WEEKS
     Route: 042
     Dates: start: 20210416, end: 20210416
  2. INFLECTRA [Suspect]
     Active Substance: INFLIXIMAB-DYYB
     Indication: CROHN^S DISEASE
     Dosage: 300 MG, INDUCTION 0, 2, 6 WEEKS FOLLOWED BY EVERY 8 WEEKS
     Route: 042
     Dates: start: 20210105
  3. AMOXCLAV [AMOXICILLIN;CLAVULANIC ACID] [Concomitant]
     Active Substance: AMOXICILLIN\CLAVULANIC ACID
     Dosage: 1 DF
     Dates: start: 20201112

REACTIONS (17)
  - Metastatic neoplasm [Unknown]
  - Drug specific antibody present [Not Recovered/Not Resolved]
  - Night sweats [Not Recovered/Not Resolved]
  - Off label use [Unknown]
  - Impaired quality of life [Unknown]
  - Vulval neoplasm [Unknown]
  - Inflammation [Unknown]
  - Neoplasm progression [Not Recovered/Not Resolved]
  - Pyrexia [Not Recovered/Not Resolved]
  - Weight decreased [Unknown]
  - Vulval haemorrhage [Recovered/Resolved]
  - Malaise [Unknown]
  - Alanine aminotransferase increased [Unknown]
  - Haemoglobin decreased [Unknown]
  - Drug level increased [Not Recovered/Not Resolved]
  - C-reactive protein increased [Unknown]
  - Secretion discharge [Not Recovered/Not Resolved]

NARRATIVE: CASE EVENT DATE: 2021
